FAERS Safety Report 9801674 (Version 1)
Quarter: 2014Q1

REPORT INFORMATION
  Report Type: Spontaneous
  Country: CN (occurrence: CN)
  Receive Date: 20140107
  Receipt Date: 20140107
  Transmission Date: 20141002
  Serious: Yes (Other)
  Sender: FDA-Public Use
  Company Number: PHHY2013CN153775

PATIENT
  Age: 16 Year
  Sex: Female

DRUGS (6)
  1. TACROLIMUS [Suspect]
     Indication: NEPHROTIC SYNDROME
     Dosage: 0.1 MG/KG, BID
  2. TACROLIMUS [Interacting]
     Dosage: 6.5 MG, BID
  3. TACROLIMUS [Interacting]
     Dosage: 3 MG, BID
  4. BERBERINE [Interacting]
     Indication: DIARRHOEA
     Dosage: 0.2 G, TID
  5. PREDNISONE [Concomitant]
     Indication: NEPHROTIC SYNDROME
     Dosage: 60 MG/M2, UNK
  6. PREDNISONE [Concomitant]
     Dosage: 40 MG/M2, UNK

REACTIONS (3)
  - Drug level increased [Recovering/Resolving]
  - Drug interaction [Recovering/Resolving]
  - Nephropathy toxic [Recovering/Resolving]
